FAERS Safety Report 9930330 (Version 2)
Quarter: 2014Q1

REPORT INFORMATION
  Report Type: Spontaneous
  Country: US (occurrence: US)
  Receive Date: 20140227
  Receipt Date: 20140227
  Transmission Date: 20141002
  Serious: No
  Sender: FDA-Public Use
  Company Number: US-AMGEN-USASP2013077069

PATIENT
  Age: 41 Year
  Sex: Female
  Weight: 84.35 kg

DRUGS (3)
  1. ENBREL [Suspect]
     Indication: ANKYLOSING SPONDYLITIS
     Dosage: 50 MG, QWK
     Route: 058
     Dates: start: 20131021, end: 20131023
  2. METHOTREXATE [Concomitant]
     Dosage: 15 MG, QWK
  3. METHOTREXATE [Concomitant]
     Dosage: 10 MG, QWK
     Route: 048

REACTIONS (3)
  - Nausea [Not Recovered/Not Resolved]
  - White blood cell count decreased [Not Recovered/Not Resolved]
  - Sinusitis [Not Recovered/Not Resolved]
